FAERS Safety Report 21499998 (Version 1)
Quarter: 2022Q4

REPORT INFORMATION
  Report Type: Spontaneous
  Country: US (occurrence: US)
  Receive Date: 20221024
  Receipt Date: 20221024
  Transmission Date: 20230113
  Serious: No
  Sender: FDA-Public Use
  Company Number: US-PFIZER INC-PV202200086857

PATIENT
  Age: 3 Year

DRUGS (2)
  1. HYDROCORTISONE ACETATE [Suspect]
     Active Substance: HYDROCORTISONE ACETATE
     Dosage: UNK
     Dates: start: 20220809
  2. MUPIROCIN [Suspect]
     Active Substance: MUPIROCIN
     Dosage: UNK
     Dates: start: 20220809

REACTIONS (1)
  - Drug ineffective [Unknown]
